FAERS Safety Report 5732132-X (Version None)
Quarter: 2008Q2

REPORT INFORMATION
  Report Type: 
  Country: None (occurrence: None)
  Receive Date: 20080508
  Receipt Date: 20080429
  Transmission Date: 20081010
  Serious: Yes (Other)
  Sender: FDA-Public Use
  Company Number: US-PFIZER INC-2008037602

PATIENT
  Sex: Female
  Weight: 65.8 kg

DRUGS (8)
  1. CHANTIX [Suspect]
     Indication: SMOKING CESSATION THERAPY
     Route: 048
     Dates: start: 20080420, end: 20080421
  2. LODINE [Concomitant]
     Indication: ARTHRITIS
  3. VYTORIN [Concomitant]
     Indication: BLOOD CHOLESTEROL
     Dosage: TEXT:10/80MG
  4. ESTRACE [Concomitant]
  5. VITAMIN CAP [Concomitant]
  6. ASCORBIC ACID [Concomitant]
  7. VITAMIN E [Concomitant]
  8. DIURETICS [Concomitant]

REACTIONS (1)
  - RECTAL HAEMORRHAGE [None]
